FAERS Safety Report 8520736-0 (Version None)
Quarter: 2012Q3

REPORT INFORMATION
  Report Type: 
  Country: None (occurrence: None)
  Receive Date: 20120705
  Receipt Date: 20120620
  Transmission Date: 20120928
  Serious: Yes (Hospitalization)
  Sender: FDA-Public Use
  Company Number: DSJ-2012-08641

PATIENT
  Age: 79 Year
  Sex: Female

DRUGS (3)
  1. EYE DROPS (EYE DROPS) [Concomitant]
  2. AMLODIPINE BESYLATE AND OLMESARTAN MEDOXOMIL [Suspect]
     Indication: HYPERTENSION
     Dosage: 40/5 MG (1 IN 1 D), PER ORAL
     Route: 048
     Dates: start: 20120511
  3. AMLODIPINE BESYLATE AND OLMESARTAN MEDOXOMIL [Suspect]
     Indication: HYPERTENSION
     Dosage: 40/5 MG (1 IN 1 D), PER ORAL
     Route: 048
     Dates: start: 20100101, end: 20120501

REACTIONS (10)
  - CONDITION AGGRAVATED [None]
  - HYPERGLYCAEMIA [None]
  - DRUG ADMINISTRATION ERROR [None]
  - ECONOMIC PROBLEM [None]
  - CATARACT OPERATION [None]
  - BLOOD PRESSURE INCREASED [None]
  - OVARIAN CYST [None]
  - TREATMENT NONCOMPLIANCE [None]
  - MUSCLE SPASMS [None]
  - PAIN [None]
